FAERS Safety Report 4656784-0 (Version None)
Quarter: 2005Q2

REPORT INFORMATION
  Report Type: 
  Country: None (occurrence: None)
  Receive Date: 20050506
  Receipt Date: 20050421
  Transmission Date: 20051028
  Serious: Yes (Hospitalization)
  Sender: FDA-Public Use
  Company Number: 2005SE02403

PATIENT
  Age: 67 Year
  Sex: Male

DRUGS (6)
  1. ROSUVASTATIN [Suspect]
     Indication: CARDIAC FAILURE CHRONIC
     Dosage: 10 MG QD PO
     Route: 048
     Dates: start: 20040715
  2. ACARD [Concomitant]
  3. CONCOR [Concomitant]
  4. INHIBACE [Concomitant]
  5. AMILORID [Concomitant]
  6. HYDROCHLOROTHIAZIDE [Concomitant]

REACTIONS (4)
  - COUGH [None]
  - HEADACHE [None]
  - NASAL CONGESTION [None]
  - PYREXIA [None]
